FAERS Safety Report 21599361 (Version 1)
Quarter: 2022Q4

REPORT INFORMATION
  Report Type: Spontaneous
  Country: CN (occurrence: CN)
  Receive Date: 20221115
  Receipt Date: 20221115
  Transmission Date: 20230112
  Serious: Yes (Hospitalization, Other)
  Sender: FDA-Public Use
  Company Number: CN-SA-2022SA463941

PATIENT
  Age: 55 Year
  Sex: Male

DRUGS (6)
  1. OXALIPLATIN [Suspect]
     Active Substance: OXALIPLATIN
     Indication: Gastric cancer
     Dosage: 220 MG, DAY 1
     Dates: start: 20191231, end: 202001
  2. OXALIPLATIN [Suspect]
     Active Substance: OXALIPLATIN
     Dosage: 220 MG, DAY 1
     Dates: start: 20200721, end: 20200901
  3. CAPECITABINE [Suspect]
     Active Substance: CAPECITABINE
     Indication: Gastric cancer
     Dosage: 3.5 G, .5 G IN THE MORNING, 2.0 G IN THE EVENING, D1 TO D14;
     Dates: start: 20191231, end: 202001
  4. CAPECITABINE [Suspect]
     Active Substance: CAPECITABINE
     Dosage: 3.5 G, .5 G IN THE MORNING, 2.0 G IN THE EVENING, D1 TO D14;
     Dates: start: 20200721, end: 20200901
  5. TORIPALIMAB [Suspect]
     Active Substance: TORIPALIMAB
     Indication: Gastric cancer
     Dosage: 240 MG, Q21D
     Dates: start: 20191231, end: 202001
  6. TORIPALIMAB [Suspect]
     Active Substance: TORIPALIMAB
     Dosage: 240 MG, Q21D
     Dates: start: 20200721, end: 202008

REACTIONS (10)
  - Type 1 diabetes mellitus [Recovering/Resolving]
  - Asthenia [Recovering/Resolving]
  - Eating disorder [Recovering/Resolving]
  - Weight decreased [Recovering/Resolving]
  - Thirst [Recovering/Resolving]
  - Tachypnoea [Recovering/Resolving]
  - Diabetic ketoacidosis [Recovering/Resolving]
  - Nausea [Recovering/Resolving]
  - Vomiting [Recovering/Resolving]
  - Hypokalaemia [Recovering/Resolving]

NARRATIVE: CASE EVENT DATE: 20200701
